FAERS Safety Report 21010428 (Version 1)
Quarter: 2022Q2

REPORT INFORMATION
  Report Type: Spontaneous
  Country: CO (occurrence: CO)
  Receive Date: 20220627
  Receipt Date: 20220627
  Transmission Date: 20220721
  Serious: No
  Sender: FDA-Public Use
  Company Number: CO-PFIZER INC-PV202200000875

PATIENT

DRUGS (1)
  1. GENOTROPIN [Suspect]
     Active Substance: SOMATROPIN
     Dosage: 1 MG,UNSPECIFIED FREQUENCY
     Route: 058

REACTIONS (3)
  - Device mechanical issue [Unknown]
  - Device failure [Unknown]
  - Wrong device used [Unknown]
